FAERS Safety Report 20193294 (Version 1)
Quarter: 2021Q4

REPORT INFORMATION
  Report Type: Spontaneous
  Country: BR (occurrence: BR)
  Receive Date: 20211216
  Receipt Date: 20211216
  Transmission Date: 20220303
  Serious: Yes (Other)
  Sender: FDA-Public Use
  Company Number: BR-KOREA IPSEN Pharma-2021-30862

PATIENT
  Age: 44 Year
  Sex: Female
  Weight: 48 kg

DRUGS (1)
  1. LANREOTIDE ACETATE [Suspect]
     Active Substance: LANREOTIDE ACETATE
     Indication: Hepatic neuroendocrine tumour
     Dosage: 120 MG EVERY 28 DAYS
     Route: 050
     Dates: start: 202103

REACTIONS (7)
  - Disease progression [Not Recovered/Not Resolved]
  - Injection site nodule [Not Recovered/Not Resolved]
  - Feeling hot [Unknown]
  - Weight decreased [Not Recovered/Not Resolved]
  - Weight gain poor [Not Recovered/Not Resolved]
  - Incorrect route of product administration [Unknown]
  - Product dose omission issue [Unknown]

NARRATIVE: CASE EVENT DATE: 20210101
